FAERS Safety Report 14024119 (Version 1)
Quarter: 2017Q3

REPORT INFORMATION
  Report Type: Spontaneous
  Country: US (occurrence: None)
  Receive Date: 20170929
  Receipt Date: 20170929
  Transmission Date: 20171128
  Serious: No
  Sender: FDA-Public Use
  Company Number: None

PATIENT
  Age: 61 Year
  Sex: Male
  Weight: 63.5 kg

DRUGS (1)
  1. ALBUTEROL. [Suspect]
     Active Substance: ALBUTEROL
     Indication: UPPER RESPIRATORY TRACT INFECTION
     Route: 055
     Dates: start: 20170605, end: 20170609

REACTIONS (1)
  - Tachycardia [None]

NARRATIVE: CASE EVENT DATE: 20170609
